FAERS Safety Report 9022839 (Version 1)
Quarter: 2013Q1

REPORT INFORMATION
  Report Type: Spontaneous
  Country: US (occurrence: US)
  Receive Date: 20130120
  Receipt Date: 20130120
  Transmission Date: 20140127
  Serious: No
  Sender: FDA-Public Use
  Company Number: US-ALLERGAN-1217137US

PATIENT
  Sex: Female

DRUGS (1)
  1. BOTOX? [Suspect]
     Indication: ROSACEA
     Dosage: UNK, SINGLE
     Route: 030
     Dates: start: 20121121, end: 20121121

REACTIONS (3)
  - Off label use [Unknown]
  - Facial paresis [Not Recovered/Not Resolved]
  - Facial paresis [Not Recovered/Not Resolved]
